APPROVED DRUG PRODUCT: AMOXAPINE
Active Ingredient: AMOXAPINE
Strength: 25MG
Dosage Form/Route: TABLET;ORAL
Application: A072879 | Product #002 | TE Code: AB
Applicant: CHARTWELL RX SCIENCES LLC
Approved: Jun 28, 1991 | RLD: No | RS: No | Type: RX